FAERS Safety Report 8802577 (Version 3)
Quarter: 2013Q2

REPORT INFORMATION
  Report Type: Report from Study
  Country: US (occurrence: US)
  Receive Date: 20120921
  Receipt Date: 20130604
  Transmission Date: 20140414
  Serious: Yes (Hospitalization, Other)
  Sender: FDA-Public Use
  Company Number: US-US-EMD SERONO, INC.-7161846

PATIENT
  Age: 63 Year
  Sex: Female

DRUGS (1)
  1. REBIF [Suspect]
     Indication: MULTIPLE SCLEROSIS
     Dates: start: 20111229, end: 20120905

REACTIONS (6)
  - Blood pressure increased [Recovering/Resolving]
  - Convulsion [Unknown]
  - Fall [Unknown]
  - Asthenia [Unknown]
  - Chest pain [Unknown]
  - Hypoaesthesia [Unknown]
